FAERS Safety Report 26067077 (Version 3)
Quarter: 2025Q4

REPORT INFORMATION
  Report Type: Spontaneous
  Country: US (occurrence: US)
  Receive Date: 20251119
  Receipt Date: 20251216
  Transmission Date: 20260118
  Serious: No
  Sender: HETERO
  Company Number: US-HETERO-HET2025US06838

PATIENT
  Sex: Female

DRUGS (1)
  1. GABAPENTIN [Suspect]
     Active Substance: GABAPENTIN
     Indication: Neuralgia
     Dosage: 100 MILLIGRAM, TID
     Route: 048

REACTIONS (2)
  - Nausea [Unknown]
  - Product odour abnormal [Unknown]
